FAERS Safety Report 17413809 (Version 1)
Quarter: 2020Q1

REPORT INFORMATION
  Report Type: Spontaneous
  Country: US (occurrence: US)
  Receive Date: 20200130
  Receipt Date: 20200130
  Transmission Date: 20200409
  Serious: Yes (Hospitalization)
  Sender: FDA-Public Use
  Company Number: None

PATIENT
  Age: 77 Year
  Sex: Male

DRUGS (1)
  1. QUETIAPINE (QUETIAPINE FUMARATE 300MG TAB) [Suspect]
     Active Substance: QUETIAPINE FUMARATE
     Indication: DEPRESSION
     Route: 048
     Dates: start: 20190501

REACTIONS (5)
  - Headache [None]
  - Malaise [None]
  - Decreased appetite [None]
  - Dizziness [None]
  - Feeling jittery [None]

NARRATIVE: CASE EVENT DATE: 20190918
